FAERS Safety Report 4867211-2 (Version None)
Quarter: 2005Q4

REPORT INFORMATION
  Report Type: 
  Country: None (occurrence: None)
  Receive Date: 20051228
  Receipt Date: 20051221
  Transmission Date: 20060501
  Serious: Yes (Hospitalization)
  Sender: FDA-Public Use
  Company Number: PHBS2005US18879

PATIENT
  Age: 73 Year
  Sex: Male

DRUGS (5)
  1. METOPROLOL [Suspect]
     Route: 042
  2. ASPIRIN [Concomitant]
  3. HEPARIN [Concomitant]
     Dosage: 10 U AFTER 10 MIN
     Route: 042
  4. HEPARIN [Concomitant]
     Dosage: 10 U AFTER 30 MINUTES
     Route: 042
  5. RETEPLASE [Concomitant]

REACTIONS (15)
  - ACUTE MYOCARDIAL INFARCTION [None]
  - BLOOD PH INCREASED [None]
  - BLOOD PRESSURE DECREASED [None]
  - CONFUSIONAL STATE [None]
  - CORONARY ARTERY OCCLUSION [None]
  - CORONARY ARTERY STENOSIS [None]
  - DYSARTHRIA [None]
  - DYSPNOEA [None]
  - PULMONARY EMBOLISM [None]
  - PULMONARY INFARCTION [None]
  - RESPIRATORY RATE INCREASED [None]
  - RESTLESSNESS [None]
  - SINUS TACHYCARDIA [None]
  - TACHYPNOEA [None]
  - TRICUSPID VALVE INCOMPETENCE [None]
